FAERS Safety Report 5001318-4 (Version None)
Quarter: 2006Q2

REPORT INFORMATION
  Report Type: 
  Country: None (occurrence: None)
  Receive Date: 20060512
  Receipt Date: 20050110
  Transmission Date: 20061013
  Serious: Yes (Hospitalization, Disabling)
  Sender: FDA-Public Use
  Company Number: US-MERCK-0501USA00957

PATIENT
  Age: 75 Year
  Sex: Female
  Weight: 65 kg

DRUGS (17)
  1. VIOXX [Suspect]
     Indication: ARTHRALGIA
     Route: 048
     Dates: start: 19991101
  2. VIOXX [Suspect]
     Route: 048
     Dates: end: 20020501
  3. VIOXX [Suspect]
     Route: 048
     Dates: start: 19990708
  4. VIOXX [Suspect]
     Indication: MUSCULOSKELETAL PAIN
     Route: 048
     Dates: start: 19991101
  5. VIOXX [Suspect]
     Route: 048
     Dates: end: 20020501
  6. VIOXX [Suspect]
     Route: 048
     Dates: start: 19990708
  7. MICROZIDE [Concomitant]
     Route: 065
  8. ZESTRIL [Suspect]
     Indication: HYPERTENSION
     Route: 065
     Dates: start: 19980101
  9. LEVOXYL [Concomitant]
     Route: 065
  10. NITROGLYCERIN [Concomitant]
     Route: 065
  11. WARFARIN SODIUM [Concomitant]
     Route: 065
  12. METOPROLOL [Concomitant]
     Indication: HYPERTENSION
     Route: 065
     Dates: start: 20010101
  13. AMIODARONE [Concomitant]
     Route: 065
  14. CIPRO [Concomitant]
     Route: 065
  15. TRIAMCINOLONE [Concomitant]
     Route: 061
  16. HYDRODIURIL [Concomitant]
     Route: 065
  17. LIPITOR [Concomitant]
     Indication: BLOOD CHOLESTEROL INCREASED
     Route: 065

REACTIONS (32)
  - ABDOMINAL DISCOMFORT [None]
  - ANXIETY [None]
  - ARTERIOSCLEROSIS [None]
  - ATRIAL FIBRILLATION [None]
  - CEREBROVASCULAR ACCIDENT [None]
  - CHOLELITHIASIS [None]
  - CLOSED HEAD INJURY [None]
  - COGNITIVE DISORDER [None]
  - CONFUSIONAL STATE [None]
  - DECREASED INTEREST [None]
  - DEHYDRATION [None]
  - DEMENTIA [None]
  - DRUG INTOLERANCE [None]
  - EMOTIONAL DISTRESS [None]
  - FALL [None]
  - FATIGUE [None]
  - FEAR [None]
  - GASTROINTESTINAL DISORDER [None]
  - HYPOKALAEMIA [None]
  - IMPATIENCE [None]
  - INSOMNIA [None]
  - IRRITABILITY [None]
  - MEMORY IMPAIRMENT [None]
  - MITRAL VALVE INCOMPETENCE [None]
  - PULMONARY VALVE INCOMPETENCE [None]
  - RENAL CYST [None]
  - RENAL FAILURE [None]
  - SICK SINUS SYNDROME [None]
  - TRANSAMINASES INCREASED [None]
  - TRANSIENT ISCHAEMIC ATTACK [None]
  - TRICUSPID VALVE INCOMPETENCE [None]
  - URINARY TRACT INFECTION [None]
